FAERS Safety Report 10601532 (Version 1)
Quarter: 2014Q4

REPORT INFORMATION
  Report Type: Spontaneous
  Country: US (occurrence: None)
  Receive Date: 20141121
  Receipt Date: 20141121
  Transmission Date: 20150529
  Serious: Yes (Other)
  Sender: FDA-Public Use
  Company Number: None

PATIENT
  Age: 52 Year
  Sex: Male
  Weight: 104.33 kg

DRUGS (1)
  1. NIACIN. [Suspect]
     Active Substance: NIACIN
     Indication: CARDIOVASCULAR DISORDER
     Dosage: 1 CAPSULE PER DAY, ONCE DAILY, TAKEN BY MOUTH
     Route: 048

REACTIONS (4)
  - Erythema [None]
  - Dyspnoea [None]
  - Pruritus [None]
  - Swelling [None]

NARRATIVE: CASE EVENT DATE: 20141120
